FAERS Safety Report 10252186 (Version 1)
Quarter: 2014Q2

REPORT INFORMATION
  Report Type: Spontaneous
  Country: PL (occurrence: PL)
  Receive Date: 20140623
  Receipt Date: 20140623
  Transmission Date: 20141212
  Serious: Yes (Death, Life-Threatening, Hospitalization)
  Sender: FDA-Public Use
  Company Number: PL-JNJFOC-20140605229

PATIENT
  Sex: Male
  Weight: 98 kg

DRUGS (1)
  1. USTEKINUMAB [Suspect]
     Indication: PSORIASIS
     Dosage: 45 MG AT WEEK 0, 4 , 16, 28 AND 40TH
     Route: 058
     Dates: start: 20130316, end: 20140321

REACTIONS (3)
  - Pneumonia [Fatal]
  - Tachycardia [Recovered/Resolved]
  - Thrombocytopenia [Unknown]
